FAERS Safety Report 7442122-7 (Version None)
Quarter: 2011Q2

REPORT INFORMATION
  Report Type: 
  Country: None (occurrence: None)
  Receive Date: 20110428
  Receipt Date: 20110414
  Transmission Date: 20111010
  Serious: Yes (Other)
  Sender: FDA-Public Use
  Company Number: PHEH2006US07280

PATIENT
  Sex: Female
  Weight: 104.31 kg

DRUGS (10)
  1. AREDIA [Suspect]
  2. FAMOTIDINE [Concomitant]
  3. THYROID HORMONES [Concomitant]
  4. MELOXICAM [Concomitant]
  5. TRAMADOL [Concomitant]
  6. ZOMETA [Suspect]
  7. COUMADIN [Concomitant]
  8. DOXEPIN [Concomitant]
  9. MIRTAZAPINE [Concomitant]
  10. LISINOPRIL [Concomitant]

REACTIONS (17)
  - ORAL INFECTION [None]
  - PAIN [None]
  - DECREASED INTEREST [None]
  - SPINAL OSTEOARTHRITIS [None]
  - SCIATICA [None]
  - BONE DISORDER [None]
  - ANXIETY [None]
  - ARTHROPATHY [None]
  - SPINAL COLUMN STENOSIS [None]
  - OSTEOLYSIS [None]
  - DENTAL CARIES [None]
  - SWELLING [None]
  - OSTEONECROSIS OF JAW [None]
  - GENERAL PHYSICAL HEALTH DETERIORATION [None]
  - BACK PAIN [None]
  - SENSORY LOSS [None]
  - HYPOAESTHESIA [None]
